FAERS Safety Report 12893283 (Version 1)
Quarter: 2016Q4

REPORT INFORMATION
  Report Type: Spontaneous
  Country: US (occurrence: US)
  Receive Date: 20161027
  Receipt Date: 20161027
  Transmission Date: 20170207
  Serious: Yes (Hospitalization)
  Sender: FDA-Public Use
  Company Number: None

PATIENT
  Age: 80 Year
  Sex: Female

DRUGS (15)
  1. TEMAZEPAM. [Concomitant]
     Active Substance: TEMAZEPAM
  2. IBANDRONATE [Concomitant]
     Active Substance: IBANDRONATE SODIUM
  3. COMBIVENT [Concomitant]
     Active Substance: ALBUTEROL SULFATE\IPRATROPIUM BROMIDE
  4. SIMVASTATIN. [Concomitant]
     Active Substance: SIMVASTATIN
  5. APRISO [Concomitant]
     Active Substance: MESALAMINE
  6. GABAPENTIN. [Concomitant]
     Active Substance: GABAPENTIN
  7. PRADAXA [Concomitant]
     Active Substance: DABIGATRAN ETEXILATE MESYLATE
  8. FAMOTIDINE. [Concomitant]
     Active Substance: FAMOTIDINE
  9. BUPROPION. [Concomitant]
     Active Substance: BUPROPION
  10. CLORAZ DIPOT [Concomitant]
  11. SYNTHROID [Concomitant]
     Active Substance: LEVOTHYROXINE SODIUM
  12. LIALDA [Concomitant]
     Active Substance: MESALAMINE
  13. ESBRIET [Suspect]
     Active Substance: PIRFENIDONE
     Indication: IDIOPATHIC PULMONARY FIBROSIS
     Route: 048
     Dates: start: 201509
  14. OYSCO 500 + D [Concomitant]
     Active Substance: CALCIUM\CHOLECALCIFEROL
  15. ESCITALOPRAM [Concomitant]
     Active Substance: ESCITALOPRAM OXALATE

REACTIONS (2)
  - Thrombosis [None]
  - Fall [None]

NARRATIVE: CASE EVENT DATE: 20161006
